FAERS Safety Report 11738622 (Version 2)
Quarter: 2016Q1

REPORT INFORMATION
  Report Type: Spontaneous
  Country: US (occurrence: US)
  Receive Date: 20151113
  Receipt Date: 20160318
  Transmission Date: 20160525
  Serious: No
  Sender: FDA-Public Use
  Company Number: US-PFIZER INC-2015352939

PATIENT
  Age: 73 Year
  Sex: Female
  Weight: 74.84 kg

DRUGS (2)
  1. SUTENT [Suspect]
     Active Substance: SUNITINIB MALATE
     Indication: RENAL CANCER
     Dosage: 50 MG, CYCLIC (28 DAYS ON/14 DAYS OFF)
     Dates: start: 20150927
  2. SUTENT [Suspect]
     Active Substance: SUNITINIB MALATE
     Dosage: 50 MG, CYCLIC (AT NIGHT, TAKES 28 DAYS THEN OFF FOR 2 WEEKS)
     Route: 048
     Dates: start: 201512

REACTIONS (7)
  - Skin exfoliation [Unknown]
  - Nausea [Unknown]
  - Malaise [Unknown]
  - Dyspnoea [Unknown]
  - Oral pain [Not Recovered/Not Resolved]
  - Erythema [Unknown]
  - Blood glucose decreased [Recovering/Resolving]

NARRATIVE: CASE EVENT DATE: 20160302
